FAERS Safety Report 25673371 (Version 1)
Quarter: 2025Q3

REPORT INFORMATION
  Report Type: Spontaneous
  Country: US (occurrence: US)
  Receive Date: 20250813
  Receipt Date: 20250813
  Transmission Date: 20251021
  Serious: Yes (Hospitalization, Other)
  Sender: NOVITIUM PHARMA
  Company Number: US-NOVITIUMPHARMA-2025USNVP01975

PATIENT
  Age: 79 Year
  Sex: Male

DRUGS (10)
  1. DEXAMETHASONE [Suspect]
     Active Substance: DEXAMETHASONE
     Indication: COVID-19 pneumonia
  2. DEXAMETHASONE [Suspect]
     Active Substance: DEXAMETHASONE
     Indication: COVID-19 pneumonia
  3. REMDESIVIR [Concomitant]
     Active Substance: REMDESIVIR
  4. REMDESIVIR [Concomitant]
     Active Substance: REMDESIVIR
  5. CEFTRIAXONE [Concomitant]
     Active Substance: CEFTRIAXONE
  6. CEFTRIAXONE [Concomitant]
     Active Substance: CEFTRIAXONE
  7. AZITHROMYCIN [Concomitant]
     Active Substance: AZITHROMYCIN
  8. AZITHROMYCIN [Concomitant]
     Active Substance: AZITHROMYCIN
  9. TOCILIZUMAB [Concomitant]
     Active Substance: TOCILIZUMAB
  10. TOCILIZUMAB [Concomitant]
     Active Substance: TOCILIZUMAB

REACTIONS (6)
  - Bronchopulmonary aspergillosis [Unknown]
  - Ischaemic hepatitis [Recovering/Resolving]
  - Gastrointestinal haemorrhage [Unknown]
  - Pneumonia bacterial [Unknown]
  - Haematological infection [Unknown]
  - Off label use [Unknown]
